FAERS Safety Report 23872848 (Version 2)
Quarter: 2024Q3

REPORT INFORMATION
  Report Type: Spontaneous
  Country: CA (occurrence: CA)
  Receive Date: 20240520
  Receipt Date: 20240828
  Transmission Date: 20241016
  Serious: Yes (Hospitalization, Other)
  Sender: VALIDUS
  Company Number: CA-VALIDUS PHARMACEUTICALS LLC-CA-VDP-2024-019254

PATIENT

DRUGS (2)
  1. FUROSEMIDE [Suspect]
     Active Substance: FUROSEMIDE
     Indication: Product used for unknown indication
     Dosage: 100 MG, QD
     Route: 065
  2. ZAROXOLYN [Suspect]
     Active Substance: METOLAZONE
     Indication: Product used for unknown indication
     Dosage: 2.5 MG, QOD (MWF)
     Route: 065

REACTIONS (1)
  - Acute kidney injury [Unknown]

NARRATIVE: CASE EVENT DATE: 20240120
